FAERS Safety Report 4746360-3 (Version None)
Quarter: 2005Q3

REPORT INFORMATION
  Report Type: 
  Country: None (occurrence: None)
  Receive Date: 20050815
  Receipt Date: 20050804
  Transmission Date: 20060218
  Serious: Yes (Hospitalization)
  Sender: FDA-Public Use
  Company Number: 2005104931

PATIENT
  Age: 51 Year
  Sex: Female

DRUGS (6)
  1. NEURONTIN [Suspect]
     Indication: BLADDER PAIN
     Dosage: 1800 MG (600 MG, 3 IN 1 D), ORAL
     Route: 048
     Dates: start: 20050517, end: 20050701
  2. ALL OTHER THERAPEUTIC PRODUCTS (ALL OTHER THERAPEUTIC PRODUCTS) [Concomitant]
  3. SANDRENA (ESTRADIOL) [Concomitant]
  4. NEGRAM POWDER [Concomitant]
  5. DESLORATADINE (DESLORATADINE) [Concomitant]
  6. CALCICHEW-D3 (CALCIUM CARBONATE, COLECALCIFEROL) [Concomitant]

REACTIONS (6)
  - DIZZINESS [None]
  - DRUG WITHDRAWAL SYNDROME [None]
  - NAUSEA [None]
  - PALPITATIONS [None]
  - SLEEP DISORDER [None]
  - SMALL INTESTINAL OBSTRUCTION [None]
